FAERS Safety Report 8186476-5 (Version None)
Quarter: 2012Q1

REPORT INFORMATION
  Report Type: 
  Country: None (occurrence: None)
  Receive Date: 20120306
  Receipt Date: 20120224
  Transmission Date: 20120608
  Serious: Yes (Hospitalization)
  Sender: FDA-Public Use
  Company Number: KR-JNJFOC-20120213110

PATIENT
  Sex: Male
  Weight: 54 kg

DRUGS (8)
  1. AZATHIOPRINE [Concomitant]
     Route: 048
     Dates: start: 20100325, end: 20110314
  2. AZATHIOPRINE [Concomitant]
     Indication: CROHN'S DISEASE
     Route: 048
     Dates: start: 20091126, end: 20100324
  3. AZATHIOPRINE [Concomitant]
     Route: 048
     Dates: start: 20110312
  4. REMICADE [Suspect]
     Indication: CROHN'S DISEASE
     Route: 042
     Dates: start: 20111128, end: 20120130
  5. PENTASA [Concomitant]
     Indication: CROHN'S DISEASE
     Dates: start: 20090610
  6. AZATHIOPRINE [Concomitant]
     Route: 048
     Dates: start: 20090924, end: 20091125
  7. AZATHIOPRINE [Concomitant]
     Route: 048
     Dates: start: 20110315, end: 20110511
  8. AZATHIOPRINE [Concomitant]
     Route: 048
     Dates: start: 20090610, end: 20090923

REACTIONS (1)
  - UPPER RESPIRATORY TRACT INFECTION [None]
